FAERS Safety Report 15160242 (Version 1)
Quarter: 2018Q3

REPORT INFORMATION
  Report Type: Spontaneous
  Country: US (occurrence: US)
  Receive Date: 20180621
  Receipt Date: 20180621
  Transmission Date: 20181010
  Serious: Yes (Other)
  Sender: FDA-Public Use
  Company Number: None

PATIENT
  Age: 84 Year
  Sex: Female

DRUGS (1)
  1. INLYTA [Suspect]
     Active Substance: AXITINIB
     Indication: RENAL CANCER
     Route: 048
     Dates: start: 20180216

REACTIONS (6)
  - Fatigue [None]
  - Decreased appetite [None]
  - Dyspnoea [None]
  - Hypersensitivity [None]
  - Balance disorder [None]
  - Inflammation [None]

NARRATIVE: CASE EVENT DATE: 20180216
